FAERS Safety Report 9215709 (Version 3)
Quarter: 2013Q2

REPORT INFORMATION
  Report Type: Spontaneous
  Country: US (occurrence: US)
  Receive Date: 20130408
  Receipt Date: 20130517
  Transmission Date: 20140414
  Serious: Yes (Hospitalization)
  Sender: FDA-Public Use
  Company Number: US-BIOGENIDEC-2013BI030012

PATIENT
  Age: 40 Year
  Sex: Female

DRUGS (2)
  1. AVONEX [Suspect]
     Indication: MULTIPLE SCLEROSIS
     Route: 030
     Dates: start: 20040613, end: 20040813
  2. AVONEX [Suspect]
     Indication: MULTIPLE SCLEROSIS
     Route: 030
     Dates: start: 20040907

REACTIONS (6)
  - Nephrolithiasis [Recovered/Resolved with Sequelae]
  - Nephropathy toxic [Recovered/Resolved]
  - Obstructive uropathy [Recovered/Resolved]
  - Renal disorder [Recovered/Resolved]
  - VIIth nerve paralysis [Not Recovered/Not Resolved]
  - Gait disturbance [Recovered/Resolved]
